FAERS Safety Report 5204476-1 (Version None)
Quarter: 2007Q1

REPORT INFORMATION
  Report Type: 
  Country: None (occurrence: None)
  Receive Date: 20070110
  Receipt Date: 20060407
  Transmission Date: 20070707
  Serious: No
  Sender: FDA-Public Use
  Company Number: US-BRISTOL-MYERS SQUIBB COMPANY-13340476

PATIENT
  Age: 66 Year
  Sex: Female
  Weight: 93 kg

DRUGS (11)
  1. ABILIFY [Suspect]
     Indication: THINKING ABNORMAL
     Dosage: 15 MG -} 7.5 MG/D -} 5 MG/D STARTING 07-APR-2006.
     Route: 048
     Dates: start: 20060201
  2. WELLBUTRIN XL [Concomitant]
     Dates: start: 19960101
  3. CARDURA [Concomitant]
  4. AMILORIDE HCL + HCTZ [Concomitant]
  5. CARDIZEM CD [Concomitant]
  6. K-DUR 10 [Concomitant]
  7. GLUCOSAMINE SULFATE [Concomitant]
  8. AMBIEN [Concomitant]
  9. ATIVAN [Concomitant]
  10. RES-Q [Concomitant]
  11. RED YEAST RICE [Concomitant]
     Indication: BLOOD CHOLESTEROL

REACTIONS (3)
  - ALOPECIA [None]
  - INCREASED APPETITE [None]
  - WEIGHT INCREASED [None]
